FAERS Safety Report 6756143-0 (Version None)
Quarter: 2010Q2

REPORT INFORMATION
  Report Type: 
  Country: None (occurrence: None)
  Receive Date: 20100604
  Receipt Date: 20100525
  Transmission Date: 20101027
  Serious: Yes (Other)
  Sender: FDA-Public Use
  Company Number: JP-PFIZER INC-2010066081

PATIENT
  Age: 84 Year
  Sex: Female

DRUGS (1)
  1. GABAPEN [Suspect]
     Dosage: 900 MG, PER DAY
     Dates: start: 20100514, end: 20100519

REACTIONS (1)
  - LIVER DISORDER [None]
